FAERS Safety Report 21287523 (Version 2)
Quarter: 2022Q4

REPORT INFORMATION
  Report Type: Spontaneous
  Country: US (occurrence: US)
  Receive Date: 20220902
  Receipt Date: 20221128
  Transmission Date: 20230113
  Serious: No
  Sender: FDA-Public Use
  Company Number: US-ABBVIE-22K-163-4500797-00

PATIENT
  Age: 60 Year
  Sex: Female
  Weight: 45.359 kg

DRUGS (4)
  1. DEPAKOTE [Suspect]
     Active Substance: DIVALPROEX SODIUM
     Indication: Electrolyte imbalance
     Route: 048
  2. MODERNA COVID-19 VACCINE [Suspect]
     Active Substance: ELASOMERAN
     Indication: COVID-19 immunisation
     Dosage: TIME INTERVAL: 1 TOTAL: FIRST DOSE
     Route: 030
     Dates: start: 20210519, end: 20210519
  3. MODERNA COVID-19 VACCINE [Suspect]
     Active Substance: ELASOMERAN
     Indication: COVID-19 immunisation
     Dosage: TIME INTERVAL: 1 TOTAL: SECOND DOSE
     Route: 030
     Dates: start: 20210628, end: 20210628
  4. XANAX [Suspect]
     Active Substance: ALPRAZOLAM
     Indication: Product used for unknown indication

REACTIONS (5)
  - Feeling abnormal [Not Recovered/Not Resolved]
  - Pain in extremity [Recovered/Resolved]
  - Pain [Recovered/Resolved]
  - Influenza [Recovered/Resolved]
  - Mobility decreased [Recovered/Resolved]

NARRATIVE: CASE EVENT DATE: 20210501
